FAERS Safety Report 16657515 (Version 1)
Quarter: 2019Q3

REPORT INFORMATION
  Report Type: Spontaneous
  Country: US (occurrence: US)
  Receive Date: 20190801
  Receipt Date: 20190801
  Transmission Date: 20191004
  Serious: No
  Sender: FDA-Public Use
  Company Number: US-TEVA-2019-US-1085261

PATIENT
  Sex: Female

DRUGS (2)
  1. BUPRENORPHINE TEVA [Suspect]
     Active Substance: BUPRENORPHINE
     Indication: MYALGIA
  2. BUPRENORPHINE TEVA [Suspect]
     Active Substance: BUPRENORPHINE
     Indication: NEURALGIA

REACTIONS (3)
  - Drug ineffective [Unknown]
  - Breakthrough pain [Unknown]
  - Product adhesion issue [Unknown]
